FAERS Safety Report 8531094-X (Version None)
Quarter: 2012Q3

REPORT INFORMATION
  Report Type: 
  Country: None (occurrence: None)
  Receive Date: 20120723
  Receipt Date: 20120712
  Transmission Date: 20120928
  Serious: Yes (Other)
  Sender: FDA-Public Use
  Company Number: DE-ASTRAZENECA-2012SE48856

PATIENT
  Age: 60 Year
  Sex: Female

DRUGS (2)
  1. ATACAND [Suspect]
     Indication: HYPERTENSION
     Route: 048
     Dates: start: 20110101
  2. NOVOPULMON 200 NOVOLIZER [Concomitant]

REACTIONS (2)
  - COUGH [None]
  - EXTRASYSTOLES [None]
